FAERS Safety Report 13657778 (Version 1)
Quarter: 2017Q2

REPORT INFORMATION
  Report Type: Report from Study
  Country: US (occurrence: US)
  Receive Date: 20170615
  Receipt Date: 20170615
  Transmission Date: 20170830
  Serious: Yes (Death)
  Sender: FDA-Public Use
  Company Number: US-ELI_LILLY_AND_COMPANY-US201706004165

PATIENT
  Age: 64 Year
  Sex: Male

DRUGS (6)
  1. GEMCITABINE HYDROCHLORIDE. [Suspect]
     Active Substance: GEMCITABINE HYDROCHLORIDE
     Indication: PLASMA CELL MYELOMA
     Dosage: 1875 MG/M2, CYCLICAL
     Route: 042
  2. PHENYTOIN. [Concomitant]
     Active Substance: PHENYTOIN
     Indication: SUPPORTIVE CARE
     Route: 065
  3. BUSULFAN. [Concomitant]
     Active Substance: BUSULFAN
     Indication: PLASMA CELL MYELOMA
     Dosage: 4000 UMOL, CYCLICAL
     Route: 042
  4. BUSULFAN. [Concomitant]
     Active Substance: BUSULFAN
     Dosage: 32 MG/M2, SINGLE
     Route: 042
  5. DEXAMETASON                        /00016001/ [Concomitant]
     Indication: SUPPORTIVE CARE
     Dosage: 8 MG, BID
     Route: 042
  6. MELPHALAN. [Concomitant]
     Active Substance: MELPHALAN
     Indication: PLASMA CELL MYELOMA
     Dosage: 60 MG/M2, CYCLICAL
     Route: 042

REACTIONS (1)
  - Pneumonia respiratory syncytial viral [Fatal]
